FAERS Safety Report 8246848-7 (Version None)
Quarter: 2012Q1

REPORT INFORMATION
  Report Type: 
  Country: None (occurrence: None)
  Receive Date: 20120316
  Receipt Date: 20090519
  Transmission Date: 20120608
  Serious: Yes (Other)
  Sender: FDA-Public Use
  Company Number: PHEH2009US04787

PATIENT
  Age: 75 Year
  Sex: Female
  Weight: 57.6 kg

DRUGS (2)
  1. TEKTURNA [Suspect]
     Indication: HYPERTENSION
     Dosage: 150 MG DAILY, ORAL
     Route: 048
     Dates: start: 20090320
  2. ASPIRIN [Concomitant]

REACTIONS (14)
  - HEADACHE [None]
  - DYSPNOEA [None]
  - HYPERTENSION [None]
  - NECK PAIN [None]
  - CONSTIPATION [None]
  - FLATULENCE [None]
  - DRUG INEFFECTIVE [None]
  - GALLBLADDER PAIN [None]
  - DIARRHOEA [None]
  - INCREASED UPPER AIRWAY SECRETION [None]
  - CHEST PAIN [None]
  - VISION BLURRED [None]
  - TREMOR [None]
  - COUGH [None]
